FAERS Safety Report 9399118 (Version 2)
Quarter: 2013Q4

REPORT INFORMATION
  Report Type: Report from Study
  Country: US (occurrence: US)
  Receive Date: 20130715
  Receipt Date: 20131217
  Transmission Date: 20140711
  Serious: Yes (Other)
  Sender: FDA-Public Use
  Company Number: US-ROCHE-1246677

PATIENT
  Sex: 0

DRUGS (4)
  1. CAPECITABINE [Suspect]
     Indication: BREAST CANCER
     Dosage: ON DAY 1-7 AND 15-21 OF A 28 DAY CYCLE.
     Route: 048
  2. CAPECITABINE [Suspect]
     Dosage: ON DAY 1-7 AND 15-21 OF A 28 DAY CYCLE.
     Route: 048
  3. CAPECITABINE [Suspect]
     Dosage: ON DAY 1-7 AND 15-21 OF A 28 DAY CYCLE.
     Route: 048
  4. VORINOSTAT [Suspect]
     Indication: BREAST CANCER
     Dosage: ON DAY 1-7 AND 15-21 OF A 28 DAY CYCLE.
     Route: 065

REACTIONS (16)
  - Fatigue [Unknown]
  - Thrombocytopenia [Unknown]
  - Leukopenia [Unknown]
  - Anaemia [Unknown]
  - Mucosal inflammation [Unknown]
  - Palmar-plantar erythrodysaesthesia syndrome [Unknown]
  - Nausea [Unknown]
  - Vomiting [Unknown]
  - Hypokalaemia [Unknown]
  - Hyponatraemia [Unknown]
  - Hypoalbuminaemia [Unknown]
  - Syncope [Unknown]
  - Ataxia [Unknown]
  - Dyspnoea [Unknown]
  - Bone pain [Unknown]
  - Infection [Unknown]
